FAERS Safety Report 24000495 (Version 1)
Quarter: 2024Q2

REPORT INFORMATION
  Report Type: Report from Study
  Country: KR (occurrence: KR)
  Receive Date: 20240621
  Receipt Date: 20240621
  Transmission Date: 20240716
  Serious: Yes (Hospitalization, Other)
  Sender: FDA-Public Use
  Company Number: KR-BR-2024-0126

PATIENT
  Age: 67 Year
  Sex: Male
  Weight: 58.1 kg

DRUGS (6)
  1. LURBINECTEDIN [Suspect]
     Active Substance: LURBINECTEDIN
     Indication: Small cell lung cancer
     Dosage: 3.2 MILLIGRAM/SQ. METER, Q3W
     Route: 042
     Dates: start: 20240229, end: 20240229
  2. YUHAN DEXAMETHASONE DISODIUM PHOSPHATE [Concomitant]
     Indication: Vomiting
     Dosage: 8 MILLIGRAM, QD
     Route: 042
     Dates: start: 20240229, end: 20240229
  3. ONSERAN [Concomitant]
     Indication: Vomiting
     Dosage: 8 MILLIGRAM
     Route: 048
     Dates: start: 20240229, end: 20240301
  4. ONDANT [Concomitant]
     Indication: Prophylaxis of nausea and vomiting
     Dosage: 8 MILLIGRAM, QD
     Route: 042
     Dates: start: 20240229, end: 20240229
  5. XARELTO [Concomitant]
     Active Substance: RIVAROXABAN
     Indication: Pulmonary embolism
     Dosage: 20 MILLIGRAM, BID
     Route: 048
     Dates: start: 20231030
  6. TRIAZOLAM [Concomitant]
     Active Substance: TRIAZOLAM
     Indication: Insomnia
     Dosage: 0.25 MILLIGRAM, QD
     Route: 048
     Dates: start: 20230425

REACTIONS (1)
  - Neutropenia [Recovered/Resolved]

NARRATIVE: CASE EVENT DATE: 20240307
